FAERS Safety Report 24094962 (Version 1)
Quarter: 2024Q3

REPORT INFORMATION
  Report Type: Report from Study
  Country: FR (occurrence: FR)
  Receive Date: 20240716
  Receipt Date: 20240716
  Transmission Date: 20241016
  Serious: Yes (Disabling, Other)
  Sender: NOVARTIS
  Company Number: FR-002147023-NVSC2024FR144795

PATIENT
  Age: 73 Year
  Sex: Male
  Weight: 104 kg

DRUGS (2)
  1. PLUVICTO [Suspect]
     Active Substance: LUTETIUM LU-177 VIPIVOTIDE TETRAXETAN
     Indication: Hormone-refractory prostate cancer
     Dosage: 7335 MBQ, CYCLIC (ONCE (1ST CYCLE))
     Route: 042
     Dates: start: 20240410, end: 20240410
  2. PLUVICTO [Suspect]
     Active Substance: LUTETIUM LU-177 VIPIVOTIDE TETRAXETAN
     Dosage: UNK UNK, CYCLIC (ONCE (2ND CYCLE))
     Route: 042
     Dates: start: 20240524, end: 20240524

REACTIONS (5)
  - Hormone-refractory prostate cancer [Unknown]
  - Malignant neoplasm progression [Unknown]
  - General physical health deterioration [Not Recovered/Not Resolved]
  - Anaemia [Not Recovered/Not Resolved]
  - Pain [Unknown]

NARRATIVE: CASE EVENT DATE: 20240610
